FAERS Safety Report 8762779 (Version 4)
Quarter: 2012Q4

REPORT INFORMATION
  Report Type: 
  Country: CA (occurrence: CA)
  Receive Date: 20120830
  Receipt Date: 20120928
  Transmission Date: 20130627
  Serious: Yes (Hospitalization)
  Sender: FDA-Public Use
  Company Number: CA-PFIZER INC-2012200615

PATIENT
  Age: 54 Year
  Sex: Female
  Weight: 30 kg

DRUGS (17)
  1. AXITINIB [Suspect]
     Indication: METASTATIC RENAL CELL CARCINOMA
     Dosage: 5 mg, 2x/day
     Route: 048
     Dates: start: 20120321, end: 20120814
  2. SYNTHROID [Concomitant]
     Indication: HYPOTHYROIDISM
     Route: 048
  3. SYNTHROID [Concomitant]
     Dosage: 0.2 mg, 1x/day
     Route: 048
     Dates: start: 20120808, end: 20120820
  4. SYNTHROID [Concomitant]
     Dosage: 0.125 mg, 1x/day
     Route: 048
     Dates: start: 20120821
  5. LORAZEPAM [Concomitant]
     Indication: INSOMNIA
     Dosage: UNK
     Route: 048
     Dates: start: 20111213
  6. FAMOTIDINE [Concomitant]
     Indication: GASTRITIS PROPHYLAXIS
     Dosage: UNK
     Dates: start: 20100218
  7. VITAMIN D [Concomitant]
     Indication: OSTEOPOROSIS PROPHYLAXIS
     Dosage: UNK
     Dates: start: 20110719
  8. TYLENOL [Concomitant]
     Indication: BACK PAIN
     Dosage: UNK
     Dates: start: 20120321
  9. STEMETIL [Concomitant]
     Indication: NAUSEA
     Dosage: UNK
     Dates: start: 20120404
  10. STEMETIL [Concomitant]
     Indication: VOMITING
  11. MAGIC MOUTHWASH [Concomitant]
     Indication: MUCOSAL INFLAMMATION
     Dosage: UNK
     Dates: start: 20120404
  12. LOPERAMIDE [Concomitant]
     Indication: DIARRHOEA
     Dosage: UNK
     Dates: start: 20120404
  13. ONDANSETRON [Concomitant]
     Indication: NAUSEA
     Dosage: UNK
     Dates: start: 20120411
  14. ONDANSETRON [Concomitant]
     Indication: VOMITING
  15. MEGACE [Concomitant]
     Indication: WEIGHT DECREASED
     Dosage: UNK
     Dates: start: 20120418
  16. MEGACE [Concomitant]
     Indication: DECREASED APPETITE
  17. QUESTRAN [Concomitant]
     Indication: WEIGHT DECREASED
     Dosage: UNK
     Dates: start: 20120613

REACTIONS (2)
  - Dysphagia [Recovered/Resolved]
  - Fatigue [Recovered/Resolved]
